FAERS Safety Report 18833378 (Version 2)
Quarter: 2021Q2

REPORT INFORMATION
  Report Type: Spontaneous
  Country: US (occurrence: US)
  Receive Date: 20210203
  Receipt Date: 20210406
  Transmission Date: 20210717
  Serious: Yes (Hospitalization)
  Sender: FDA-Public Use
  Company Number: US-CELLTRION INC.-2021US001038

PATIENT

DRUGS (6)
  1. INFLECTRA [Suspect]
     Active Substance: INFLIXIMAB-DYYB
     Indication: SYSTEMIC LUPUS ERYTHEMATOSUS
  2. INFLECTRA [Suspect]
     Active Substance: INFLIXIMAB-DYYB
     Indication: SPINAL STENOSIS
  3. SIMPONI [Concomitant]
     Active Substance: GOLIMUMAB
     Route: 042
  4. INFLECTRA [Suspect]
     Active Substance: INFLIXIMAB-DYYB
     Indication: RHEUMATOID ARTHRITIS
     Dosage: DOSE UNKNOWN; INFUSION EVERY 8 WEEKS
     Route: 065
     Dates: start: 2020
  5. ACTEMRA [Concomitant]
     Active Substance: TOCILIZUMAB
     Route: 042
  6. INFLECTRA [Suspect]
     Active Substance: INFLIXIMAB-DYYB
     Indication: FIBROMYALGIA

REACTIONS (3)
  - Drug effective for unapproved indication [Unknown]
  - Off label use [Unknown]
  - COVID-19 pneumonia [Unknown]
